FAERS Safety Report 22993533 (Version 2)
Quarter: 2024Q2

REPORT INFORMATION
  Report Type: Spontaneous
  Country: AU (occurrence: AU)
  Receive Date: 20230927
  Receipt Date: 20240604
  Transmission Date: 20240716
  Serious: Yes (Hospitalization, Other)
  Sender: FDA-Public Use
  Company Number: AU-SANDOZ-SDZ2023AU032261

PATIENT
  Age: 50 Year
  Sex: Female

DRUGS (2)
  1. ROSUVASTATIN [Interacting]
     Active Substance: ROSUVASTATIN
     Indication: Cerebrovascular accident
     Dosage: 10 MG, QD
     Route: 065
  2. RIBOCICLIB [Interacting]
     Active Substance: RIBOCICLIB
     Indication: Breast cancer
     Dosage: UNK
     Route: 065

REACTIONS (4)
  - Acute kidney injury [Unknown]
  - Rhabdomyolysis [Unknown]
  - Glomerular filtration rate decreased [Unknown]
  - Drug interaction [Unknown]
